FAERS Safety Report 11828675 (Version 1)
Quarter: 2015Q4

REPORT INFORMATION
  Report Type: Spontaneous
  Country: TW (occurrence: TW)
  Receive Date: 20151211
  Receipt Date: 20151211
  Transmission Date: 20160305
  Serious: Yes (Death, Hospitalization, Other)
  Sender: FDA-Public Use
  Company Number: TW-PFIZER INC-2015402924

PATIENT
  Age: 45 Year
  Sex: Male

DRUGS (1)
  1. CAMPTO [Suspect]
     Active Substance: IRINOTECAN
     Indication: COLON CANCER
     Dosage: 130 MG/M2, EVERY 3 WEEKS
     Route: 042
     Dates: start: 20140801, end: 20140829

REACTIONS (12)
  - Biliary tract infection [Unknown]
  - Fatigue [Unknown]
  - Septic shock [Unknown]
  - Hepatic failure [Unknown]
  - Disease progression [Fatal]
  - Pyrexia [Unknown]
  - Heart rate decreased [Unknown]
  - Colon cancer [Fatal]
  - Jaundice [Unknown]
  - Abdominal distension [Unknown]
  - Dyspnoea [Unknown]
  - Blood pressure decreased [Unknown]

NARRATIVE: CASE EVENT DATE: 20150223
